FAERS Safety Report 6176036-X (Version None)
Quarter: 2009Q2

REPORT INFORMATION
  Report Type: 
  Country: None (occurrence: None)
  Receive Date: 20090501
  Receipt Date: 20090424
  Transmission Date: 20091009
  Serious: Yes (Death, Hospitalization)
  Sender: FDA-Public Use
  Company Number: FR-AVENTIS-200911598FR

PATIENT
  Age: 43 Year
  Sex: Female

DRUGS (3)
  1. TAXOTERE [Suspect]
     Indication: BREAST CANCER FEMALE
     Route: 042
     Dates: start: 20080418, end: 20080418
  2. NEULASTA [Suspect]
     Route: 058
     Dates: start: 20080420, end: 20080420
  3. BACTRIM [Concomitant]
     Route: 048
     Dates: start: 20070501, end: 20080424

REACTIONS (2)
  - FEBRILE BONE MARROW APLASIA [None]
  - TOXIC EPIDERMAL NECROLYSIS [None]
